FAERS Safety Report 9824772 (Version 1)
Quarter: 2014Q1

REPORT INFORMATION
  Report Type: Report from Study
  Country: US (occurrence: US)
  Receive Date: 20140117
  Receipt Date: 20140117
  Transmission Date: 20141002
  Serious: Yes (Death)
  Sender: FDA-Public Use
  Company Number: US-ASTRAZENECA-2014SE03261

PATIENT
  Age: 59 Year
  Sex: Female

DRUGS (1)
  1. RHINOCORT AQUA [Suspect]
     Dosage: 32 MCG, UNKNOWN FREQUENCY
     Route: 045
     Dates: start: 20111212

REACTIONS (1)
  - Death [Fatal]
